FAERS Safety Report 15371625 (Version 1)
Quarter: 2018Q3

REPORT INFORMATION
  Report Type: Spontaneous
  Country: FR (occurrence: FR)
  Receive Date: 20180911
  Receipt Date: 20180911
  Transmission Date: 20181010
  Serious: Yes (Death, Other)
  Sender: FDA-Public Use
  Company Number: PHHY2018FR090254

PATIENT
  Age: 45 Year
  Sex: Male

DRUGS (14)
  1. MIANSERIN [Suspect]
     Active Substance: MIANSERIN
     Dosage: UNK
     Route: 065
  2. LYSANXIA [Concomitant]
     Active Substance: PRAZEPAM
     Dosage: 10 MG, QN
     Route: 065
  3. CYAMEMAZINE [Suspect]
     Active Substance: CYAMEMAZINE
     Dosage: UNK
     Route: 065
  4. NORDAZEPAM [Suspect]
     Active Substance: NORDAZEPAM
     Indication: PRODUCT USED FOR UNKNOWN INDICATION
     Dosage: UNK
     Route: 065
  5. OXAZEPAM. [Suspect]
     Active Substance: OXAZEPAM
     Indication: INTENTIONAL OVERDOSE
     Dosage: UNK
     Route: 065
  6. TERCIAN [Suspect]
     Active Substance: CYAMEMAZINE
     Indication: INTENTIONAL OVERDOSE
     Dosage: UNK
     Route: 065
  7. LYSANXIA [Concomitant]
     Active Substance: PRAZEPAM
     Indication: PRODUCT USED FOR UNKNOWN INDICATION
     Dosage: 10 MG, QD
     Route: 065
  8. OLANZAPINE. [Suspect]
     Active Substance: OLANZAPINE
     Indication: PRODUCT USED FOR UNKNOWN INDICATION
     Dosage: UNK
     Route: 065
  9. MIANSERIN [Suspect]
     Active Substance: MIANSERIN
     Indication: INTENTIONAL OVERDOSE
     Dosage: UNK
     Route: 065
  10. CYAMEMAZINE [Suspect]
     Active Substance: CYAMEMAZINE
     Indication: SUICIDE ATTEMPT
     Dosage: UNK
     Route: 065
  11. ALIMEMAZINE [Suspect]
     Active Substance: TRIMEPRAZINE
     Indication: PRODUCT USED FOR UNKNOWN INDICATION
     Dosage: UNK
     Route: 065
  12. ZYPREXA [Suspect]
     Active Substance: OLANZAPINE
     Indication: INTENTIONAL OVERDOSE
     Dosage: 10 MG, QN (IN THE EVENING)
     Route: 065
  13. THERALENE [Suspect]
     Active Substance: TRIMEPRAZINE
     Indication: INTENTIONAL OVERDOSE
     Dosage: UNK
     Route: 065
  14. OXAZEPAM. [Suspect]
     Active Substance: OXAZEPAM
     Dosage: UNK
     Route: 065

REACTIONS (8)
  - Respiratory depression [Fatal]
  - Intentional overdose [Fatal]
  - Pulmonary oedema [Fatal]
  - Hepatic cirrhosis [Fatal]
  - Toxicity to various agents [Fatal]
  - Completed suicide [Fatal]
  - Altered state of consciousness [Fatal]
  - Cardiopulmonary failure [Fatal]
